FAERS Safety Report 9494532 (Version 2)
Quarter: 2013Q4

REPORT INFORMATION
  Report Type: Spontaneous
  Country: US (occurrence: US)
  Receive Date: 20130903
  Receipt Date: 20131003
  Transmission Date: 20140711
  Serious: Yes (Death, Hospitalization, Other)
  Sender: FDA-Public Use
  Company Number: US-PFIZER INC-2013251645

PATIENT
  Sex: 0

DRUGS (4)
  1. IBUPROFEN [Suspect]
     Dosage: UNK
  2. NAPROXEN SODIUM [Suspect]
     Dosage: UNK
  3. TYLENOL ANALGESIC UNKNOWN [Suspect]
     Indication: PAIN
     Dosage: UNK
     Route: 065
  4. TYLENOL ANALGESIC UNKNOWN [Suspect]
     Indication: PYREXIA

REACTIONS (10)
  - Rash [Fatal]
  - Blister [Fatal]
  - Stevens-Johnson syndrome [Fatal]
  - Epidermal necrosis [Fatal]
  - Acute generalised exanthematous pustulosis [Fatal]
  - Liver injury [Fatal]
  - Hypersensitivity [Fatal]
  - Amnesia [Fatal]
  - Brain injury [Fatal]
  - Overdose [Unknown]
